FAERS Safety Report 4347610-8 (Version None)
Quarter: 2004Q1

REPORT INFORMATION
  Report Type: 
  Country: None (occurrence: None)
  Receive Date: 20040325
  Receipt Date: 20031120
  Transmission Date: 20041129
  Serious: No
  Sender: FDA-Public Use
  Company Number: US_031299192

PATIENT
  Age: 74 Year
  Sex: Female

DRUGS (1)
  1. FORTEO [Suspect]
     Dates: start: 20031119

REACTIONS (4)
  - BACK PAIN [None]
  - FEELING ABNORMAL [None]
  - MEDICATION ERROR [None]
  - PAIN IN EXTREMITY [None]
